FAERS Safety Report 8938547 (Version 1)
Quarter: 2012Q4

REPORT INFORMATION
  Report Type: Report from Study
  Country: US (occurrence: US)
  Receive Date: 20121130
  Receipt Date: 20121130
  Transmission Date: 20130627
  Serious: Yes (Hospitalization, Other)
  Sender: FDA-Public Use
  Company Number: US-ABBOTT-12P-163-0998407-00

PATIENT
  Sex: Male
  Weight: 110.32 kg

DRUGS (2)
  1. HUMIRA [Suspect]
     Indication: ANKYLOSING SPONDYLITIS
     Route: 058
     Dates: start: 201204, end: 20120711
  2. METFORMIN HYDROCHLORIDE [Concomitant]
     Indication: PRODUCT USED FOR UNKNOWN INDICATION

REACTIONS (9)
  - Arthropathy [Recovering/Resolving]
  - Pyrexia [Unknown]
  - Rash [Unknown]
  - Skin irritation [Unknown]
  - Urticaria [Unknown]
  - Wound infection [Recovering/Resolving]
  - Injection site reaction [Unknown]
  - Body tinea [Unknown]
  - Skin papilloma [Unknown]
